FAERS Safety Report 24351472 (Version 1)
Quarter: 2024Q3

REPORT INFORMATION
  Report Type: Report from Study
  Country: PE (occurrence: PE)
  Receive Date: 20240923
  Receipt Date: 20240923
  Transmission Date: 20241016
  Serious: No
  Sender: ROCHE
  Company Number: PE-ROCHE-3540558

PATIENT
  Age: 76 Year
  Sex: Female

DRUGS (1)
  1. HERCEPTIN [Suspect]
     Active Substance: TRASTUZUMAB
     Indication: Breast cancer
     Route: 065
     Dates: start: 2021, end: 202312

REACTIONS (4)
  - Lymphadenopathy [Unknown]
  - Drug ineffective [Unknown]
  - Diabetes mellitus [Unknown]
  - Bladder disorder [Unknown]
